FAERS Safety Report 7051775-7 (Version None)
Quarter: 2010Q4

REPORT INFORMATION
  Report Type: 
  Country: None (occurrence: None)
  Receive Date: 20101019
  Receipt Date: 20101013
  Transmission Date: 20110411
  Serious: Yes (Disabling, Other)
  Sender: FDA-Public Use
  Company Number: DE-NAPPMUNDI-DEU-2010-0006633

PATIENT
  Age: 69 Year
  Sex: Male

DRUGS (5)
  1. PALLADONE [Suspect]
     Indication: ARTHRALGIA
     Dosage: 8 MG, 5/DAY
     Route: 048
  2. PALLADONE [Suspect]
     Dosage: 16 MG, BID
     Route: 048
     Dates: start: 20090601
  3. VALORON N                          /00628301/ [Concomitant]
  4. FLUNITRAZEPAM [Concomitant]
  5. BROMAZANIL [Concomitant]

REACTIONS (2)
  - PERIODONTITIS [None]
  - TOOTH LOSS [None]
